FAERS Safety Report 8839985 (Version 1)
Quarter: 2012Q4

REPORT INFORMATION
  Report Type: 
  Country: US (occurrence: US)
  Receive Date: 20121015
  Receipt Date: 20121015
  Transmission Date: 20130627
  Serious: Yes (Hospitalization, Disabling, Other)
  Sender: FDA-Public Use
  Company Number: US-PFIZER INC-2012219841

PATIENT
  Age: 56 Year
  Sex: Female
  Weight: 88.89 kg

DRUGS (3)
  1. MORPHINE SULFATE [Suspect]
     Indication: PAIN
     Dosage: 60 mg, 2x/day
     Route: 048
     Dates: start: 20120305, end: 20120816
  2. PERCOCET [Suspect]
     Indication: PAIN
     Dosage: 10 mg, tid prn
     Route: 048
     Dates: start: 20110503, end: 20120816
  3. COCAINE [Suspect]
     Dosage: UNK
     Route: 065

REACTIONS (2)
  - Intentional overdose [Not Recovered/Not Resolved]
  - Substance abuse [Not Recovered/Not Resolved]
